FAERS Safety Report 16647369 (Version 5)
Quarter: 2022Q1

REPORT INFORMATION
  Report Type: Spontaneous
  Country: US (occurrence: US)
  Receive Date: 20190730
  Receipt Date: 20220301
  Transmission Date: 20220423
  Serious: Yes (Other)
  Sender: FDA-Public Use
  Company Number: US-GILEAD-2019-0420236

PATIENT
  Age: 51 Year
  Sex: Male
  Weight: 95.238 kg

DRUGS (71)
  1. ATRIPLA [Suspect]
     Active Substance: EFAVIRENZ\EMTRICITABINE\TENOFOVIR DISOPROXIL FUMARATE
     Indication: HIV infection
     Dosage: UNK
     Route: 048
     Dates: start: 200608, end: 201608
  2. TRUVADA [Suspect]
     Active Substance: EMTRICITABINE\TENOFOVIR DISOPROXIL FUMARATE
     Indication: HIV infection
     Dosage: UNK
     Route: 048
     Dates: start: 201606, end: 201707
  3. BIKTARVY [Concomitant]
     Active Substance: BICTEGRAVIR SODIUM\EMTRICITABINE\TENOFOVIR ALAFENAMIDE FUMARATE
  4. ACYCLOVIR [Concomitant]
     Active Substance: ACYCLOVIR
  5. AMITRIPTYLINE [Concomitant]
     Active Substance: AMITRIPTYLINE
  6. AMOXICILLIN [Concomitant]
     Active Substance: AMOXICILLIN
  7. ASPIRIN [Concomitant]
     Active Substance: ASPIRIN
  8. BACTRIM [Concomitant]
     Active Substance: SULFAMETHOXAZOLE\TRIMETHOPRIM
  9. CORTISONE [Concomitant]
     Active Substance: CORTISONE
  10. CRESTOR [Concomitant]
     Active Substance: ROSUVASTATIN CALCIUM
  11. DEPAKOTE [Concomitant]
     Active Substance: DIVALPROEX SODIUM
  12. PHENYTOIN SODIUM [Concomitant]
     Active Substance: PHENYTOIN SODIUM
  13. ESOMEPRAZOLE [Concomitant]
     Active Substance: ESOMEPRAZOLE
  14. FAMOTIDINE [Concomitant]
     Active Substance: FAMOTIDINE
  15. FLOMAX [Concomitant]
     Active Substance: TAMSULOSIN HYDROCHLORIDE
  16. HEPARIN [Concomitant]
     Active Substance: HEPARIN SODIUM
  17. LANSOPRAZOLE [Concomitant]
     Active Substance: LANSOPRAZOLE
  18. LASIX [Concomitant]
     Active Substance: FUROSEMIDE
  19. LITHIUM [Concomitant]
     Active Substance: LITHIUM
  20. LEVOFLOXACIN [Concomitant]
     Active Substance: LEVOFLOXACIN
  21. PENICILLIN [Concomitant]
     Active Substance: PENICILLIN
  22. PREDNISONE [Concomitant]
     Active Substance: PREDNISONE
  23. EPZICOM [Concomitant]
     Active Substance: ABACAVIR SULFATE\LAMIVUDINE
  24. NORVIR [Concomitant]
     Active Substance: RITONAVIR
  25. SUSTIVA [Concomitant]
     Active Substance: EFAVIRENZ
  26. TRIUMEQ [Concomitant]
     Active Substance: ABACAVIR SULFATE\DOLUTEGRAVIR SODIUM\LAMIVUDINE
  27. ZERIT [Concomitant]
     Active Substance: STAVUDINE
  28. MAALOX PLUS ANTACID JUNIOR [Concomitant]
  29. ATIVAN [Concomitant]
     Active Substance: LORAZEPAM
  30. XANAX [Concomitant]
     Active Substance: ALPRAZOLAM
  31. HALDOL [HALOPERIDOL LACTATE] [Concomitant]
  32. PRILOSEC [Concomitant]
     Active Substance: OMEPRAZOLE MAGNESIUM
  33. PROTONIX [Concomitant]
     Active Substance: PANTOPRAZOLE SODIUM
  34. ZANTAC [Concomitant]
     Active Substance: RANITIDINE HYDROCHLORIDE
  35. TOPROL XL [Concomitant]
     Active Substance: METOPROLOL SUCCINATE
  36. NITROSTAT [Concomitant]
     Active Substance: NITROGLYCERIN
  37. FLONASE ALLERGY RELIEF [Concomitant]
     Active Substance: FLUTICASONE PROPIONATE
  38. ZOFRAN [Concomitant]
     Active Substance: ONDANSETRON HYDROCHLORIDE
  39. VITAMINS [Concomitant]
     Active Substance: VITAMINS
  40. HEXAVITAMIN [VITAMINS NOS] [Concomitant]
  41. TRICOR [Concomitant]
     Active Substance: FENOFIBRATE
  42. ABILIFY [Concomitant]
     Active Substance: ARIPIPRAZOLE
  43. ALBUTEROL SULFATE [Concomitant]
     Active Substance: ALBUTEROL SULFATE
  44. CREON [Concomitant]
     Active Substance: PANCRELIPASE AMYLASE\PANCRELIPASE LIPASE\PANCRELIPASE PROTEASE
  45. EPCLUSA [Concomitant]
     Active Substance: SOFOSBUVIR\VELPATASVIR
  46. PAMELOR [Concomitant]
     Active Substance: NORTRIPTYLINE HYDROCHLORIDE
  47. LIPITOR [Concomitant]
     Active Substance: ATORVASTATIN CALCIUM
  48. BUSPAR [Concomitant]
     Active Substance: BUSPIRONE HYDROCHLORIDE
  49. LISINOPRIL [Concomitant]
     Active Substance: LISINOPRIL
  50. FLEXERIL [Concomitant]
     Active Substance: CYCLOBENZAPRINE HYDROCHLORIDE
  51. LYRICA [Concomitant]
     Active Substance: PREGABALIN
  52. ADVAIR HFA [Concomitant]
     Active Substance: FLUTICASONE PROPIONATE\SALMETEROL XINAFOATE
  53. ULTRAM [Concomitant]
     Active Substance: TRAMADOL HYDROCHLORIDE
  54. ROXICODONE [Concomitant]
     Active Substance: OXYCODONE HYDROCHLORIDE
  55. PHENERGAN [Concomitant]
     Active Substance: PROMETHAZINE HYDROCHLORIDE
  56. DILAUDID [Concomitant]
     Active Substance: HYDROMORPHONE HYDROCHLORIDE
  57. SYMBICORT [Concomitant]
     Active Substance: BUDESONIDE\FORMOTEROL FUMARATE DIHYDRATE
  58. ANTIVERT [Concomitant]
     Active Substance: MECLIZINE HYDROCHLORIDE
  59. METFORMIN [Concomitant]
     Active Substance: METFORMIN HYDROCHLORIDE
  60. CYANOCOBALAMIN [Concomitant]
     Active Substance: CYANOCOBALAMIN
  61. REGLAN [Concomitant]
     Active Substance: METOCLOPRAMIDE HYDROCHLORIDE
  62. TESTOSTERONE [Concomitant]
     Active Substance: TESTOSTERONE
  63. COMPAZINE [Concomitant]
     Active Substance: PROCHLORPERAZINE MALEATE
  64. EFFEXOR [Concomitant]
     Active Substance: VENLAFAXINE HYDROCHLORIDE
  65. FLOVENT HFA [Concomitant]
     Active Substance: FLUTICASONE PROPIONATE
  66. KLONOPIN [Concomitant]
     Active Substance: CLONAZEPAM
  67. PLAVIX [Concomitant]
     Active Substance: CLOPIDOGREL BISULFATE
  68. BENADRYL [Concomitant]
     Active Substance: DIPHENHYDRAMINE HYDROCHLORIDE
  69. LORTAB [Concomitant]
     Active Substance: ACETAMINOPHEN\HYDROCODONE BITARTRATE
  70. PERCOCET [Concomitant]
     Active Substance: ACETAMINOPHEN\OXYCODONE HYDROCHLORIDE
  71. AUGMENTIN [Concomitant]
     Active Substance: AMOXICILLIN\CLAVULANATE POTASSIUM

REACTIONS (15)
  - End stage renal disease [Not Recovered/Not Resolved]
  - Chronic kidney disease [Not Recovered/Not Resolved]
  - Renal failure [Unknown]
  - Osteonecrosis [Unknown]
  - Nephrolithiasis [Unknown]
  - Tooth loss [Recovered/Resolved]
  - Bone loss [Not Recovered/Not Resolved]
  - Pain [Unknown]
  - Emotional distress [Unknown]
  - Anxiety [Unknown]
  - Anhedonia [Unknown]
  - Economic problem [Unknown]
  - Bone density decreased [Unknown]
  - Dysuria [Unknown]
  - Fatigue [Unknown]

NARRATIVE: CASE EVENT DATE: 20160425
